FAERS Safety Report 14533860 (Version 2)
Quarter: 2019Q2

REPORT INFORMATION
  Report Type: Spontaneous
  Country: US (occurrence: US)
  Receive Date: 20180215
  Receipt Date: 20190408
  Transmission Date: 20190711
  Serious: No
  Sender: FDA-Public Use
  Company Number: US-SHIRE-US201803846

PATIENT
  Sex: Male

DRUGS (2)
  1. XIIDRA [Suspect]
     Active Substance: LIFITEGRAST
     Indication: DRY EYE
     Dosage: 1 GTT DROPS, AS REQ^D
     Route: 047
     Dates: end: 2017
  2. EQUATE [Concomitant]
     Indication: PRODUCT USED FOR UNKNOWN INDICATION

REACTIONS (5)
  - Lacrimation increased [Not Recovered/Not Resolved]
  - Vision blurred [Unknown]
  - Drug ineffective [Unknown]
  - Instillation site reaction [Unknown]
  - Product storage error [Unknown]
